FAERS Safety Report 24577924 (Version 1)
Quarter: 2024Q4

REPORT INFORMATION
  Report Type: Other
  Country: US (occurrence: US)
  Receive Date: 20241104
  Receipt Date: 20241104
  Transmission Date: 20250114
  Serious: Yes (Other)
  Sender: NEUROCRINE BIOSCIENCES
  Company Number: US-NEUROCRINE BIOSCIENCES INC.-2024NBI05557

PATIENT
  Age: 62 Year
  Sex: Female

DRUGS (1)
  1. INGREZZA [Suspect]
     Active Substance: VALBENAZINE
     Indication: Tardive dyskinesia
     Dosage: 40 MILLIGRAM, QD
     Route: 048
     Dates: start: 20240501, end: 202405

REACTIONS (4)
  - Ventricular tachycardia [Recovered/Resolved]
  - Dystonia [Recovered/Resolved]
  - Tardive dyskinesia [Recovered/Resolved]
  - Parkinsonism [Recovered/Resolved]

NARRATIVE: CASE EVENT DATE: 20240511
